FAERS Safety Report 4612956-2 (Version None)
Quarter: 2005Q1

REPORT INFORMATION
  Report Type: 
  Country: None (occurrence: None)
  Receive Date: 20050318
  Receipt Date: 20050308
  Transmission Date: 20050727
  Serious: Yes (Other)
  Sender: FDA-Public Use
  Company Number: CA-ROCHE-398094

PATIENT
  Age: 84 Year
  Sex: Female

DRUGS (2)
  1. TAMIFLU [Suspect]
     Indication: INFLUENZA
     Route: 048
     Dates: start: 20050208, end: 20050212
  2. TAMIFLU [Suspect]
     Route: 048
     Dates: start: 20050213, end: 20050227

REACTIONS (1)
  - CARDIAC FAILURE ACUTE [None]
